FAERS Safety Report 5036230-8 (Version None)
Quarter: 2006Q2

REPORT INFORMATION
  Report Type: 
  Country: None (occurrence: None)
  Receive Date: 20060531
  Receipt Date: 20060427
  Transmission Date: 20061013
  Serious: Yes (Other)
  Sender: FDA-Public Use
  Company Number: PHEH2006US04310

PATIENT
  Age: 66 Year
  Sex: Female

DRUGS (12)
  1. EXJADE [Suspect]
     Dosage: 2000 MG, QD;  1000 MG, QD
     Dates: start: 20060313, end: 20060327
  2. EXJADE [Suspect]
     Dosage: 2000 MG, QD;  1000 MG, QD
     Dates: start: 20060210
  3. REVLAMID (LENALIDOMIDE) [Concomitant]
  4. PREVACID [Concomitant]
  5. ZOLOFT [Concomitant]
  6. COMPAZINE [Concomitant]
  7. AMBIEN [Concomitant]
  8. MULTI-VIT (VITAMINS NOS) [Concomitant]
  9. KYTRIL [Concomitant]
  10. KLOR-CON [Concomitant]
  11. PHENERGAN (PROMETHAZINE HYDROCHLORIDE) [Concomitant]
  12. PROCRIT [Concomitant]

REACTIONS (5)
  - ALANINE AMINOTRANSFERASE INCREASED [None]
  - ASPARTATE AMINOTRANSFERASE INCREASED [None]
  - BLOOD ALKALINE PHOSPHATASE INCREASED [None]
  - HEPATIC ENZYME INCREASED [None]
  - PRURITUS GENERALISED [None]
